FAERS Safety Report 23402488 (Version 2)
Quarter: 2024Q3

REPORT INFORMATION
  Report Type: Report from Study
  Country: GB (occurrence: GB)
  Receive Date: 20240115
  Receipt Date: 20240716
  Transmission Date: 20241016
  Serious: Yes (Hospitalization, Other)
  Sender: REGENERON
  Company Number: GB-SA-SAC20230719001557

PATIENT
  Sex: Female

DRUGS (1)
  1. PRALUENT [Suspect]
     Active Substance: ALIROCUMAB
     Indication: Type IIa hyperlipidaemia
     Dosage: 150 MG, QOW
     Route: 058

REACTIONS (6)
  - Hospitalisation [Unknown]
  - Loss of consciousness [Unknown]
  - Memory impairment [Unknown]
  - Influenza [Unknown]
  - Accident [Unknown]
  - Sensory loss [Unknown]
